FAERS Safety Report 17326605 (Version 3)
Quarter: 2020Q2

REPORT INFORMATION
  Report Type: Report from Study
  Country: FR (occurrence: FR)
  Receive Date: 20200127
  Receipt Date: 20200429
  Transmission Date: 20200713
  Serious: Yes (Life-Threatening, Hospitalization)
  Sender: FDA-Public Use
  Company Number: FR-ROCHE-2531067

PATIENT
  Age: 74 Year
  Sex: Male

DRUGS (10)
  1. CISPLATIN. [Suspect]
     Active Substance: CISPLATIN
     Indication: ANAL CANCER
     Dosage: LAST DOSE ADMINISTERED PRIOR TO SAE (69 MG) ON 18/DEC/2019.
     Route: 065
     Dates: start: 20191007
  2. 5-FLUOROURACIL [FLUOROURACIL] [Suspect]
     Active Substance: FLUOROURACIL
     Indication: ANAL CANCER
     Dosage: LAST DOSE ADMINISTERED PRIOR TO SAE (4150 MG) ON 20/DEC/2019.
     Route: 065
     Dates: start: 20191007
  3. DOLIPRANE [Concomitant]
     Active Substance: ACETAMINOPHEN
     Route: 065
  4. LOXEN L P [Concomitant]
     Active Substance: NICARDIPINE HYDROCHLORIDE
     Route: 065
  5. TAMSULOSINE [TAMSULOSIN] [Concomitant]
     Active Substance: TAMSULOSIN
     Route: 065
  6. INNOHEP [Concomitant]
     Active Substance: TINZAPARIN SODIUM
     Dosage: 12000 UI/DAY
     Route: 065
  7. DOCETAXEL. [Suspect]
     Active Substance: DOCETAXEL
     Indication: ANAL CANCER
     Dosage: LAST DOSE ADMINISTERED PRIOR TO SAE (68 MG) ON 18/DEC/2019.
     Route: 065
     Dates: start: 20191007
  8. JANUVIA [Concomitant]
     Active Substance: SITAGLIPTIN PHOSPHATE
     Route: 065
  9. ATEZOLIZUMAB. [Suspect]
     Active Substance: ATEZOLIZUMAB
     Indication: ANAL CANCER
     Dosage: LAST DOSE ADMINISTERED PRIOR TO SAE ON 18/DEC/2019.
     Route: 042
     Dates: start: 20191007
  10. PERINDOPRIL [Concomitant]
     Active Substance: PERINDOPRIL
     Route: 065

REACTIONS (5)
  - Fall [Unknown]
  - Loss of consciousness [Not Recovered/Not Resolved]
  - Gastric ulcer haemorrhage [Recovered/Resolved]
  - Sepsis [Recovered/Resolved]
  - Gastric haemorrhage [Recovered/Resolved]

NARRATIVE: CASE EVENT DATE: 20200107
